FAERS Safety Report 6933907-1 (Version None)
Quarter: 2010Q3

REPORT INFORMATION
  Report Type: 
  Country: None (occurrence: None)
  Receive Date: 20100820
  Receipt Date: 20100812
  Transmission Date: 20110219
  Serious: Yes (Death)
  Sender: FDA-Public Use
  Company Number: JP-ROCHE-719510

PATIENT
  Sex: Female

DRUGS (3)
  1. AVASTIN [Suspect]
     Indication: LUNG ADENOCARCINOMA
     Dosage: ACTION TAKEN: DISCONTINUED
     Route: 041
     Dates: start: 20100428, end: 20100716
  2. CARBOPLATIN [Concomitant]
     Dosage: NOTE: DOSAGE IS UNCERTAIN, ACTION TAKEN: DISCONTINUED
     Route: 041
  3. TAXOL [Concomitant]
     Dosage: NOTE: DOSAGE IS UNCERTAIN, ACTION TAKEN: DISCONTINUED
     Route: 041

REACTIONS (2)
  - DEATH [None]
  - SUDDEN DEATH [None]
